FAERS Safety Report 4850729-6 (Version None)
Quarter: 2005Q4

REPORT INFORMATION
  Report Type: 
  Country: None (occurrence: None)
  Receive Date: 20051208
  Receipt Date: 20051125
  Transmission Date: 20060501
  Serious: Yes (Death)
  Sender: FDA-Public Use
  Company Number: 2005162296

PATIENT
  Age: 53 Year
  Sex: Female

DRUGS (3)
  1. EPIRUBICIN [Suspect]
     Indication: BREAST CANCER RECURRENT
     Dosage: 75M/MG2 INTRAVENOUS
     Route: 042
     Dates: start: 20050928, end: 20051026
  2. CYCLOPHOSPHAMIDE [Concomitant]
  3. HYSRON       (MEDROXYPROGESTERONE ACETATE) [Concomitant]

REACTIONS (5)
  - CARDIAC FAILURE [None]
  - LYMPHANGIOSIS CARCINOMATOSA [None]
  - NEUTROPENIA [None]
  - RESPIRATORY FAILURE [None]
  - WHITE BLOOD CELL COUNT DECREASED [None]
